FAERS Safety Report 11617572 (Version 1)
Quarter: 2015Q4

REPORT INFORMATION
  Report Type: Report from Study
  Country: DE (occurrence: DE)
  Receive Date: 20151009
  Receipt Date: 20151009
  Transmission Date: 20160304
  Serious: Yes (Death)
  Sender: FDA-Public Use
  Company Number: DE-SUNOVION-2015SUN000471

PATIENT

DRUGS (8)
  1. ZEBINIX [Suspect]
     Active Substance: ESLICARBAZEPINE ACETATE
     Indication: EPILEPSY
  2. ZEBINIX [Suspect]
     Active Substance: ESLICARBAZEPINE ACETATE
     Indication: EPILEPSY
     Dosage: 800 MG, DAILY
     Route: 048
     Dates: start: 20150729, end: 20150823
  3. ALENDRON [Concomitant]
     Indication: OSTEOPOROSIS
     Dosage: 10 MG, DAILY
     Route: 048
     Dates: start: 20131220, end: 20150823
  4. SPIRONOLACTONE. [Concomitant]
     Active Substance: SPIRONOLACTONE
     Indication: LUNG DISORDER
     Dosage: 100 MG, DAILY
     Route: 048
     Dates: start: 20091126, end: 20150823
  5. ESOMEPRAZOL                        /01479301/ [Concomitant]
     Active Substance: ESOMEPRAZOLE
     Indication: GASTRIC DISORDER
     Dosage: 20 MG, DAILY
     Route: 048
     Dates: start: 20130516, end: 20150823
  6. IBUPROFEN                          /00109205/ [Concomitant]
     Active Substance: IBUPROFEN
     Indication: SPINAL DISORDER
     Dosage: 1800 MG, DAILY
     Route: 048
     Dates: start: 20130328, end: 20150823
  7. CALCIUM + VITAMIN D3 [Concomitant]
     Indication: OSTEOPOROSIS
     Dosage: 1000 MG, DAILY
     Route: 048
     Dates: start: 20091213, end: 20150823
  8. OXYGEN. [Concomitant]
     Active Substance: OXYGEN
     Indication: LUNG DISORDER
     Dosage: 50 L, DAILY
     Route: 055
     Dates: start: 2009, end: 20150823

REACTIONS (2)
  - Pneumonia [Fatal]
  - Drug dose titration not performed [Unknown]

NARRATIVE: CASE EVENT DATE: 20150729
